FAERS Safety Report 21836051 (Version 2)
Quarter: 2023Q1

REPORT INFORMATION
  Report Type: Spontaneous
  Country: US (occurrence: US)
  Receive Date: 20230109
  Receipt Date: 20230119
  Transmission Date: 20230418
  Serious: Yes (Other)
  Sender: FDA-Public Use
  Company Number: US-MALLINCKRODT-T202205429

PATIENT
  Age: 57 Year
  Sex: Male
  Weight: 78 kg

DRUGS (3)
  1. H.P. ACTHAR [Suspect]
     Active Substance: CORTICOTROPIN
     Indication: Arthropathy
     Dosage: 1 MILLILITER (80 UNITS), TWICE A WEEK (WEDNESDAY AND SUNDAYS)
     Route: 058
     Dates: start: 202104
  2. H.P. ACTHAR [Suspect]
     Active Substance: CORTICOTROPIN
     Indication: Juvenile spondyloarthritis
  3. H.P. ACTHAR [Suspect]
     Active Substance: CORTICOTROPIN
     Indication: Ankylosing spondylitis

REACTIONS (6)
  - Fall [Unknown]
  - Hand fracture [Unknown]
  - Feeling abnormal [Not Recovered/Not Resolved]
  - Pain [Not Recovered/Not Resolved]
  - Contusion [Unknown]
  - Limb injury [Unknown]

NARRATIVE: CASE EVENT DATE: 20221011
